FAERS Safety Report 11590381 (Version 1)
Quarter: 2015Q4

REPORT INFORMATION
  Report Type: Spontaneous
  Country: AU (occurrence: None)
  Receive Date: 20151002
  Receipt Date: 20151002
  Transmission Date: 20160304
  Serious: Yes (Disabling, Other)
  Sender: FDA-Public Use
  Company Number: AU-MDT-ADR-2015-01896

PATIENT
  Sex: Male

DRUGS (1)
  1. BACLOFEN INTRATHECAL [Suspect]
     Active Substance: BACLOFEN

REACTIONS (12)
  - Arachnoiditis [None]
  - General physical health deterioration [None]
  - Discomfort [None]
  - Spinal cord injury [None]
  - Nerve injury [None]
  - Nuclear magnetic resonance imaging abnormal [None]
  - Computerised tomogram abnormal [None]
  - Back pain [None]
  - Performance status decreased [None]
  - Pain [None]
  - Procedural pain [None]
  - Cerebral atrophy [None]
